FAERS Safety Report 8029355-6 (Version None)
Quarter: 2012Q1

REPORT INFORMATION
  Report Type: 
  Country: None (occurrence: None)
  Receive Date: 20120106
  Receipt Date: 20120104
  Transmission Date: 20120608
  Serious: Yes (Hospitalization, Other)
  Sender: FDA-Public Use
  Company Number: US-ABBOTT-11P-163-0882719-00

PATIENT
  Sex: Female
  Weight: 112.59 kg

DRUGS (20)
  1. SYNTHROID [Suspect]
     Indication: RADIOTHERAPY TO THYROID
  2. BUPROPION HYDROCHLORIDE [Concomitant]
     Indication: DEPRESSION
  3. CARBAMAZEPINE [Interacting]
     Indication: MEDICATION ERROR
     Dates: start: 20110624, end: 20110827
  4. CELEBREX [Concomitant]
     Indication: ARTHRITIS
  5. CAL/MAG CITRATE [Concomitant]
     Indication: PRODUCT USED FOR UNKNOWN INDICATION
  6. VITAMIN B-12 [Concomitant]
     Indication: PRODUCT USED FOR UNKNOWN INDICATION
  7. LEXAPRO [Concomitant]
     Indication: FIBROMYALGIA
  8. STOOL SOFTNER AND STIMULANT [Concomitant]
     Indication: PRODUCT USED FOR UNKNOWN INDICATION
  9. GARLIC [Concomitant]
     Indication: PRODUCT USED FOR UNKNOWN INDICATION
  10. VITAMIN D [Concomitant]
     Indication: PRODUCT USED FOR UNKNOWN INDICATION
  11. FUROSEMIDE [Concomitant]
     Indication: FLUID RETENTION
  12. VITAMIN E [Concomitant]
     Indication: PRODUCT USED FOR UNKNOWN INDICATION
  13. POTASSIUM CHLORIDE [Concomitant]
     Indication: BLOOD POTASSIUM ABNORMAL
     Dosage: MICRO, 1 IN AM
  14. THERA TEARS OMEGA -3 [Concomitant]
     Indication: PRODUCT USED FOR UNKNOWN INDICATION
  15. SYNTHROID [Suspect]
     Indication: BASEDOW'S DISEASE
     Dates: start: 19960101
  16. TOVIAZ [Concomitant]
     Indication: STRESS URINARY INCONTINENCE
  17. TRAZODONE HCL [Concomitant]
     Indication: FIBROMYALGIA
  18. GLUCOSAMINE / CHONDROITIN MSM [Concomitant]
     Indication: PRODUCT USED FOR UNKNOWN INDICATION
     Dosage: 600/500
  19. PRILOSEC OCT [Concomitant]
     Indication: BARRETT'S OESOPHAGUS
  20. VITAMIN C [Concomitant]
     Indication: PRODUCT USED FOR UNKNOWN INDICATION

REACTIONS (21)
  - DEPRESSION [None]
  - SPINAL FUSION SURGERY [None]
  - SPINAL NERVE STIMULATOR IMPLANTATION [None]
  - APPENDICITIS PERFORATED [None]
  - INFECTION [None]
  - MEMORY IMPAIRMENT [None]
  - PAIN [None]
  - UNEVALUABLE EVENT [None]
  - CARCINOID TUMOUR [None]
  - PERIPHERAL EMBOLISM [None]
  - JOINT SWELLING [None]
  - ANXIETY [None]
  - DISSOCIATION [None]
  - COLECTOMY [None]
  - OEDEMA PERIPHERAL [None]
  - PAIN IN EXTREMITY [None]
  - HYPERSOMNIA [None]
  - KNEE ARTHROPLASTY [None]
  - APPENDICITIS [None]
  - APATHY [None]
  - DRUG INTERACTION [None]
